FAERS Safety Report 18259260 (Version 2)
Quarter: 2020Q4

REPORT INFORMATION
  Report Type: Report from Study
  Country: CA (occurrence: CA)
  Receive Date: 20200911
  Receipt Date: 20201013
  Transmission Date: 20210113
  Serious: Yes (Hospitalization)
  Sender: FDA-Public Use
  Company Number: CA-JNJFOC-20191134842

PATIENT
  Age: 72 Year
  Sex: Female

DRUGS (10)
  1. LUTEIN                             /01638501/ [Concomitant]
     Active Substance: LUTEIN
     Dates: start: 2009
  2. BLEXTEN [Concomitant]
     Active Substance: BILASTINE
     Dates: start: 2017
  3. NORVASC [Concomitant]
     Active Substance: AMLODIPINE BESYLATE
     Dates: start: 2017
  4. SIMPONI [Suspect]
     Active Substance: GOLIMUMAB
     Indication: RHEUMATOID ARTHRITIS
     Route: 058
     Dates: start: 20191106, end: 20191126
  5. HYDROCHLOROTHIAZIDE. [Concomitant]
     Active Substance: HYDROCHLOROTHIAZIDE
     Dates: start: 2014
  6. SYNTHROID [Concomitant]
     Active Substance: LEVOTHYROXINE SODIUM
     Dates: start: 2010
  7. TECTA [Concomitant]
     Active Substance: PANTOPRAZOLE MAGNESIUM
     Dates: start: 2010
  8. CRESTOR [Concomitant]
     Active Substance: ROSUVASTATIN CALCIUM
     Dates: start: 1990
  9. PRISTIQ EXTENDED-RELEASE [Concomitant]
     Active Substance: DESVENLAFAXINE SUCCINATE
     Dates: start: 2002
  10. AVAPRO [Concomitant]
     Active Substance: IRBESARTAN
     Dates: start: 1995

REACTIONS (2)
  - Demyelination [Recovered/Resolved]
  - Cerebrovascular accident [Recovered/Resolved]

NARRATIVE: CASE EVENT DATE: 20191120
